FAERS Safety Report 4667945-9 (Version None)
Quarter: 2005Q2

REPORT INFORMATION
  Report Type: 
  Country: None (occurrence: None)
  Receive Date: 20050520
  Receipt Date: 20041209
  Transmission Date: 20051028
  Serious: Yes (Other)
  Sender: FDA-Public Use
  Company Number: PHEH2004US13191

PATIENT
  Age: 52 Year
  Sex: Female

DRUGS (2)
  1. ZOMETA [Suspect]
     Indication: METASTASES TO BONE
     Dosage: 4 MG EVERY MONTH
     Dates: start: 20020501
  2. HERCEPTIN [Concomitant]
     Indication: METASTASES TO BONE
     Dosage: 134 MG MONTHLY
     Dates: start: 20020501

REACTIONS (3)
  - DENTAL EXAMINATION [None]
  - ORAL PAIN [None]
  - OSTEONECROSIS [None]
